FAERS Safety Report 6970777-X (Version None)
Quarter: 2010Q3

REPORT INFORMATION
  Report Type: 
  Country: None (occurrence: None)
  Receive Date: 20100908
  Receipt Date: 20100901
  Transmission Date: 20110219
  Serious: Yes (Hospitalization)
  Sender: FDA-Public Use
  Company Number: A0845266A

PATIENT
  Age: 45 Year
  Sex: Female
  Weight: 116.4 kg

DRUGS (5)
  1. AVANDAMET [Suspect]
     Dosage: 2TAB TWICE PER DAY
     Route: 048
     Dates: start: 20050801, end: 20091005
  2. LOTREL [Concomitant]
  3. INSULIN [Concomitant]
  4. SIMVASTATIN [Concomitant]
  5. ESTRADIOL [Concomitant]

REACTIONS (4)
  - CARDIAC ARREST [None]
  - CARDIOMYOPATHY [None]
  - MYOCARDIAL INFARCTION [None]
  - VENTRICULAR FIBRILLATION [None]
